FAERS Safety Report 24535204 (Version 1)
Quarter: 2024Q4

REPORT INFORMATION
  Report Type: Spontaneous
  Country: US (occurrence: US)
  Receive Date: 20241022
  Receipt Date: 20241022
  Transmission Date: 20250115
  Serious: No
  Sender: ROCHE
  Company Number: US-ROCHE-10000104706

PATIENT
  Sex: Male

DRUGS (1)
  1. COTELLIC [Suspect]
     Active Substance: COBIMETINIB
     Indication: Haemophagocytic lymphohistiocytosis
     Route: 048
     Dates: start: 202106

REACTIONS (4)
  - Haemorrhage [Unknown]
  - Contusion [Unknown]
  - Skin ulcer [Unknown]
  - Off label use [Unknown]
